FAERS Safety Report 20426894 (Version 1)
Quarter: 2022Q1

REPORT INFORMATION
  Report Type: Report from Study
  Country: US (occurrence: US)
  Receive Date: 20220204
  Receipt Date: 20220204
  Transmission Date: 20220424
  Serious: No
  Sender: FDA-Public Use
  Company Number: US-EXELIXIS-CABO-21046061

PATIENT
  Sex: Male

DRUGS (10)
  1. CABOMETYX [Suspect]
     Active Substance: CABOZANTINIB S-MALATE
     Indication: Prostate cancer
     Dosage: 20 MG, QD
     Dates: start: 20211026
  2. CABOMETYX [Suspect]
     Active Substance: CABOZANTINIB S-MALATE
     Indication: Bone cancer
     Dosage: 40 MG
     Dates: start: 20211120
  3. TECENTRIQ [Suspect]
     Active Substance: ATEZOLIZUMAB
     Indication: Prostate cancer
     Dosage: UNK, Q3WEEKS
     Dates: start: 20211026
  4. TECENTRIQ [Suspect]
     Active Substance: ATEZOLIZUMAB
     Indication: Bone cancer
     Dosage: UNK, Q4WEEKS
  5. ATORVASTATIN [Concomitant]
     Active Substance: ATORVASTATIN
  6. CALCIUM CARBONATE\CHOLECALCIFEROL [Concomitant]
     Active Substance: CALCIUM CARBONATE\CHOLECALCIFEROL
  7. LEUPROLIDE [Concomitant]
     Active Substance: LEUPROLIDE
  8. METOPROLOL [Concomitant]
     Active Substance: METOPROLOL
  9. VITAMINS [Concomitant]
     Active Substance: VITAMINS
  10. ONDANSETRON [Concomitant]
     Active Substance: ONDANSETRON

REACTIONS (12)
  - Prostatic specific antigen increased [Recovering/Resolving]
  - Sinusitis [Unknown]
  - Oropharyngeal pain [Unknown]
  - Glossodynia [Not Recovered/Not Resolved]
  - Constipation [Recovering/Resolving]
  - Decreased appetite [Not Recovered/Not Resolved]
  - Weight decreased [Recovering/Resolving]
  - Nausea [Not Recovered/Not Resolved]
  - Oral pain [Unknown]
  - Fatigue [Not Recovered/Not Resolved]
  - Dry skin [Recovering/Resolving]
  - Off label use [Unknown]
